FAERS Safety Report 8096203-8 (Version None)
Quarter: 2012Q1

REPORT INFORMATION
  Report Type: 
  Country: None (occurrence: None)
  Receive Date: 20120129
  Receipt Date: 20111209
  Transmission Date: 20120608
  Serious: No
  Sender: FDA-Public Use
  Company Number: US-ABBOTT-11P-163-0882311-00

PATIENT
  Sex: Female
  Weight: 108.05 kg

DRUGS (6)
  1. IMURAN [Concomitant]
     Indication: CROHN'S DISEASE
  2. PREDNISONE TAB [Concomitant]
     Indication: CROHN'S DISEASE
     Dates: start: 20111001, end: 20111001
  3. HUMIRA [Suspect]
     Route: 058
     Dates: start: 20111101, end: 20111101
  4. HUMIRA [Suspect]
     Route: 058
     Dates: start: 20111208, end: 20111208
  5. HUMIRA [Suspect]
     Indication: CROHN'S DISEASE
     Route: 058
     Dates: start: 20100401, end: 20111001
  6. NEXIUM [Concomitant]
     Indication: GASTROOESOPHAGEAL REFLUX DISEASE

REACTIONS (20)
  - ASTHENIA [None]
  - PYREXIA [None]
  - CHEST PAIN [None]
  - BRONCHIAL DISORDER [None]
  - HEADACHE [None]
  - THROAT TIGHTNESS [None]
  - MUSCULOSKELETAL PAIN [None]
  - VIRAL INFECTION [None]
  - CROHN'S DISEASE [None]
  - FEELING HOT [None]
  - PAIN [None]
  - DYSPNOEA [None]
  - CONDITION AGGRAVATED [None]
  - UPPER RESPIRATORY TRACT INFECTION [None]
  - BRONCHITIS [None]
  - FLUSHING [None]
  - CHEST DISCOMFORT [None]
  - DYSPHONIA [None]
  - PERICARDIAL EFFUSION [None]
  - LUNG DISORDER [None]
